FAERS Safety Report 14507622 (Version 3)
Quarter: 2018Q2

REPORT INFORMATION
  Report Type: Spontaneous
  Country: US (occurrence: US)
  Receive Date: 20180208
  Receipt Date: 20180618
  Transmission Date: 20180711
  Serious: Yes (Hospitalization)
  Sender: FDA-Public Use
  Company Number: US-ACTELION-A-NJ2018-167104

PATIENT
  Age: 52 Year
  Sex: Female

DRUGS (1)
  1. OPSUMIT [Suspect]
     Active Substance: MACITENTAN
     Indication: PULMONARY ARTERIAL HYPERTENSION
     Dosage: 10 MG, QD
     Route: 048
     Dates: start: 20170228, end: 201804

REACTIONS (5)
  - Feeling abnormal [Unknown]
  - Stress [Unknown]
  - Blood pressure increased [Unknown]
  - Condition aggravated [Unknown]
  - Dyspnoea [Unknown]
